FAERS Safety Report 5216318-9 (Version None)
Quarter: 2007Q1

REPORT INFORMATION
  Report Type: 
  Country: None (occurrence: None)
  Receive Date: 20070123
  Receipt Date: 20070111
  Transmission Date: 20070707
  Serious: Yes (Other)
  Sender: FDA-Public Use
  Company Number: US-PFIZER INC-2007004214

PATIENT
  Sex: Male

DRUGS (1)
  1. CHANTIX [Suspect]
     Dates: start: 20061101, end: 20070101

REACTIONS (2)
  - APATHY [None]
  - HEADACHE [None]
